FAERS Safety Report 4347520-6 (Version None)
Quarter: 2004Q2

REPORT INFORMATION
  Report Type: 
  Country: None (occurrence: None)
  Receive Date: 20040426
  Receipt Date: 20040426
  Transmission Date: 20050107
  Serious: Yes (Other)
  Sender: FDA-Public Use
  Company Number: None

PATIENT
  Age: 28 Year
  Sex: Male

DRUGS (1)
  1. PPD [Suspect]
     Dosage: SUBDERMAL / LEFT ARM
     Route: 059
     Dates: start: 20040407

REACTIONS (3)
  - INJECTION SITE PRURITUS [None]
  - RASH [None]
  - SKIN DISCOLOURATION [None]
